APPROVED DRUG PRODUCT: TARACTAN
Active Ingredient: CHLORPROTHIXENE
Strength: 12.5MG/ML
Dosage Form/Route: INJECTABLE;INJECTION
Application: N012487 | Product #001
Applicant: HOFFMANN LA ROCHE INC
Approved: Approved Prior to Jan 1, 1982 | RLD: No | RS: No | Type: DISCN